FAERS Safety Report 5751791-9 (Version None)
Quarter: 2008Q2

REPORT INFORMATION
  Report Type: 
  Country: None (occurrence: None)
  Receive Date: 20080527
  Receipt Date: 20080508
  Transmission Date: 20081010
  Serious: No
  Sender: FDA-Public Use
  Company Number: C-08-0007

PATIENT
  Age: 18 Year
  Sex: Male
  Weight: 49.8957 kg

DRUGS (2)
  1. CARBAMAZEPINE [Suspect]
     Indication: MOVEMENT DISORDER
     Dosage: 17.5ML 3X/DAY ORALLY
     Route: 048
     Dates: start: 20080427, end: 20080503
  2. BACLOFEN [Concomitant]

REACTIONS (4)
  - DISEASE RECURRENCE [None]
  - DRUG INEFFECTIVE [None]
  - MOVEMENT DISORDER [None]
  - THERAPEUTIC RESPONSE UNEXPECTED WITH DRUG SUBSTITUTION [None]
